FAERS Safety Report 9912906 (Version 1)
Quarter: 2014Q1

REPORT INFORMATION
  Report Type: Spontaneous
  Country: US (occurrence: None)
  Receive Date: 20140218
  Receipt Date: 20140218
  Transmission Date: 20141002
  Serious: No
  Sender: FDA-Public Use
  Company Number: None

PATIENT
  Age: 5 Year
  Sex: Male
  Weight: 18.14 kg

DRUGS (1)
  1. SINGULAIR [Suspect]
     Indication: ALLERGIC COUGH
     Dates: start: 20130601, end: 20140108

REACTIONS (4)
  - Depression [None]
  - Anxiety [None]
  - Depressed mood [None]
  - Crying [None]
